FAERS Safety Report 8902470 (Version 1)
Quarter: 2012Q4

REPORT INFORMATION
  Report Type: 
  Country: CN (occurrence: CN)
  Receive Date: 20121112
  Receipt Date: 20121112
  Transmission Date: 20130627
  Serious: Yes (Death, Hospitalization)
  Sender: FDA-Public Use
  Company Number: CN-BAYER-2012-117673

PATIENT
  Age: 39 Year
  Sex: Male
  Weight: 97 kg

DRUGS (1)
  1. ULTRAVIST 370 [Suspect]
     Indication: CT SCAN
     Dosage: 100 ml, ONCE
     Dates: start: 20121015, end: 20121015

REACTIONS (12)
  - Multi-organ failure [Fatal]
  - Iodine allergy [Unknown]
  - Cardio-respiratory arrest [Unknown]
  - Hypoaesthesia [Unknown]
  - Hyperhidrosis [Unknown]
  - Dyspnoea [Unknown]
  - Productive cough [Unknown]
  - Vomiting [Unknown]
  - Lip swelling [Unknown]
  - Urticaria [Unknown]
  - Eyelid oedema [Unknown]
  - Wheezing [Unknown]
